FAERS Safety Report 4629745-5 (Version None)
Quarter: 2005Q1

REPORT INFORMATION
  Report Type: 
  Country: None (occurrence: None)
  Receive Date: 20050107
  Receipt Date: 20041025
  Transmission Date: 20050727
  Serious: No
  Sender: FDA-Public Use
  Company Number: 235619K04USA

PATIENT
  Age: 40 Year
  Sex: Female

DRUGS (3)
  1. REBIF [Suspect]
     Indication: MULTIPLE SCLEROSIS
     Dosage: 22 MCG, 3 IN 1 WEEKS, SUBCUTANEOUS
     Route: 058
     Dates: start: 20040809
  2. PROZAC [Concomitant]
  3. ZOCOR [Concomitant]

REACTIONS (9)
  - CHEST DISCOMFORT [None]
  - CHEST PAIN [None]
  - DEPRESSION [None]
  - HYPOAESTHESIA [None]
  - LARYNGEAL PAIN [None]
  - NAUSEA [None]
  - PAIN [None]
  - PARAESTHESIA [None]
  - PHARYNGOLARYNGEAL PAIN [None]
